FAERS Safety Report 19285100 (Version 1)
Quarter: 2021Q2

REPORT INFORMATION
  Report Type: Not Available
  Country: GB (occurrence: GB)
  Receive Date: 20210521
  Receipt Date: 20210521
  Transmission Date: 20210717
  Serious: Yes (Other)
  Sender: FDA-Public Use
  Company Number: GB-SYNTHON BV-IN51PV21_59610

PATIENT
  Age: 76 Year
  Sex: Male
  Weight: 67 kg

DRUGS (12)
  1. CO?AMOXICLAV [AMOXICILLIN;CLAVULANATE POTASSIUM] [Concomitant]
     Active Substance: AMOXICILLIN\CLAVULANATE POTASSIUM
     Indication: ILL-DEFINED DISORDER
     Dosage: TAKE ONE 3 TIMES/DAY
     Route: 065
     Dates: start: 20210408, end: 20210415
  2. TAMSULOSIN [Suspect]
     Active Substance: TAMSULOSIN
     Indication: ILL-DEFINED DISORDER
     Dosage: UNK
     Route: 065
     Dates: start: 20210513
  3. RAMIPRIL. [Concomitant]
     Active Substance: RAMIPRIL
     Indication: ILL-DEFINED DISORDER
     Dosage: TAKE ONE DAILY
     Route: 065
     Dates: start: 20201029
  4. TAMSULOSIN HYDROCHLORIDE. [Concomitant]
     Active Substance: TAMSULOSIN HYDROCHLORIDE
     Indication: ILL-DEFINED DISORDER
     Dosage: TAKE ONE DAILY
     Route: 065
     Dates: start: 20210311, end: 20210414
  5. PREGABALIN. [Concomitant]
     Active Substance: PREGABALIN
     Indication: ILL-DEFINED DISORDER
     Dosage: TAKE ONE TWICE DAILY
     Route: 065
     Dates: start: 20210427
  6. PROPRANOLOL [Concomitant]
     Active Substance: PROPRANOLOL HYDROCHLORIDE
     Indication: ILL-DEFINED DISORDER
     Dosage: TAKE TWO PM
     Route: 065
     Dates: start: 20201029
  7. SITAGLIPTIN [Concomitant]
     Active Substance: SITAGLIPTIN
     Indication: ILL-DEFINED DISORDER
     Dosage: TAKE ONE DAILY
     Route: 065
     Dates: start: 20201029
  8. ATORVASTATIN [Concomitant]
     Active Substance: ATORVASTATIN
     Indication: ILL-DEFINED DISORDER
     Dosage: TAKE ONE DAILY
     Route: 065
     Dates: start: 20201029
  9. METFORMIN [Concomitant]
     Active Substance: METFORMIN HYDROCHLORIDE
     Indication: ILL-DEFINED DISORDER
     Dosage: TAKE TWO TWICE  DAILY
     Route: 065
     Dates: start: 20201029
  10. SILDENAFIL. [Concomitant]
     Active Substance: SILDENAFIL
     Indication: ILL-DEFINED DISORDER
     Dosage: USE AS DIRECTED
     Route: 065
     Dates: start: 20190426
  11. FEXOFENADINE [Concomitant]
     Active Substance: FEXOFENADINE HYDROCHLORIDE
     Indication: ILL-DEFINED DISORDER
     Dosage: TAKE ONE DAILY
     Route: 065
     Dates: start: 20210414
  12. GLICLAZIDE [Concomitant]
     Active Substance: GLICLAZIDE
     Indication: ILL-DEFINED DISORDER
     Dosage: USE AS DIRECTED
     Route: 065
     Dates: start: 20201029

REACTIONS (1)
  - Adverse drug reaction [Recovered/Resolved]

NARRATIVE: CASE EVENT DATE: 20210513
